FAERS Safety Report 17392226 (Version 1)
Quarter: 2020Q1

REPORT INFORMATION
  Report Type: Spontaneous
  Country: NL (occurrence: NL)
  Receive Date: 20200207
  Receipt Date: 20200207
  Transmission Date: 20200409
  Serious: Yes (Disabling)
  Sender: FDA-Public Use
  Company Number: PHHY2019NL042673

PATIENT
  Age: 54 Year
  Sex: Male

DRUGS (3)
  1. MIRTAZAPINE. [Concomitant]
     Active Substance: MIRTAZAPINE
     Indication: PRODUCT USED FOR UNKNOWN INDICATION
     Dosage: 0.75 MG, UNK (ONE DROP)
     Route: 048
  2. CLONAZEPAM. [Suspect]
     Active Substance: CLONAZEPAM
     Indication: TINNITUS
     Dosage: 0.75 MG, QD
     Route: 065
     Dates: start: 201401, end: 201409
  3. CLONAZEPAM. [Suspect]
     Active Substance: CLONAZEPAM
     Indication: INSOMNIA

REACTIONS (2)
  - Eye disorder [Recovering/Resolving]
  - Accommodation disorder [Recovering/Resolving]

NARRATIVE: CASE EVENT DATE: 20141022
